APPROVED DRUG PRODUCT: XADAGO
Active Ingredient: SAFINAMIDE MESYLATE
Strength: EQ 100MG BASE
Dosage Form/Route: TABLET;ORAL
Application: N207145 | Product #002 | TE Code: AB
Applicant: MDD US OPERATIONS LLC
Approved: Mar 21, 2017 | RLD: Yes | RS: Yes | Type: RX

PATENTS:
Patent 8278485 | Expires: Jun 8, 2027
Patent 8283380 | Expires: Mar 21, 2031
Patent 8076515 | Expires: Dec 10, 2028